FAERS Safety Report 10362944 (Version 1)
Quarter: 2014Q1

REPORT INFORMATION
  Report Type: Spontaneous
  Country: US (occurrence: None)
  Receive Date: 20140306
  Receipt Date: 20140306
  Transmission Date: 20141002
  Serious: Yes (Other)
  Sender: FDA-Public Use
  Company Number: 163-21880-13073896

PATIENT
  Age: 63 Year
  Sex: Male
  Weight: 81.6 kg

DRUGS (5)
  1. REVLIMID [Suspect]
     Indication: PLASMA CELL MYELOMA
     Dosage: 25 MG, 14 IN 28 D, PO
     Route: 048
     Dates: start: 200707
  2. LYRICA (PREGABALIN) [Concomitant]
  3. MULTIVITAMINS (MULTIVITMAINS) [Concomitant]
  4. ASPIRIN (ACETYLASLICYLIC ACID) [Concomitant]
  5. VALACYCLOVIR HCL (VALACICLOVIR HYDROCHLORIDE) [Concomitant]

REACTIONS (1)
  - Thrombosis [None]
